FAERS Safety Report 7755126-1 (Version None)
Quarter: 2011Q3

REPORT INFORMATION
  Report Type: 
  Country: None (occurrence: None)
  Receive Date: 20110914
  Receipt Date: 20110831
  Transmission Date: 20111222
  Serious: Yes (Death)
  Sender: FDA-Public Use
  Company Number: TPA2011A05411

PATIENT
  Age: 74 Year
  Sex: Male
  Weight: 113.3993 kg

DRUGS (3)
  1. UNKNOWN DIABETES MEDICATION (DRUG USED IN DIABETES) [Concomitant]
  2. ULTRAM [Concomitant]
  3. ACTOS [Suspect]
     Indication: TYPE 2 DIABETES MELLITUS
     Dosage: 1 IN 1 D, PER ORAL
     Route: 048
     Dates: start: 20010101, end: 20101001

REACTIONS (5)
  - BLOOD URINE PRESENT [None]
  - HEART RATE IRREGULAR [None]
  - METASTASES TO BONE [None]
  - BLADDER CANCER [None]
  - METASTASES TO LIVER [None]
